FAERS Safety Report 6504746-0 (Version None)
Quarter: 2009Q4

REPORT INFORMATION
  Report Type: 
  Country: None (occurrence: None)
  Receive Date: 20091216
  Receipt Date: 20091202
  Transmission Date: 20100525
  Serious: Yes (Death)
  Sender: FDA-Public Use
  Company Number: 1000010711

PATIENT
  Sex: Male

DRUGS (2)
  1. CITALOPRAM (CITALOPRAM HYDROBROMIDE) [Suspect]
  2. RISPERDAL CONSTA [Suspect]
     Dosage: (37.5 MG),INTRAMUSCULAR
     Route: 030
     Dates: end: 20090425

REACTIONS (1)
  - COMPLETED SUICIDE [None]
